FAERS Safety Report 4414231-8 (Version None)
Quarter: 2004Q3

REPORT INFORMATION
  Report Type: 
  Country: None (occurrence: None)
  Receive Date: 20040803
  Receipt Date: 20040720
  Transmission Date: 20050211
  Serious: Yes (Disabling)
  Sender: FDA-Public Use
  Company Number: PHHO2004AU10635

PATIENT
  Age: 46 Year
  Sex: Female
  Weight: 61 kg

DRUGS (1)
  1. FAMCICLOVIR [Suspect]
     Indication: HERPES SIMPLEX
     Dosage: 2 TABLETS
     Route: 048
     Dates: start: 20040717, end: 20040719

REACTIONS (2)
  - PALPITATIONS [None]
  - SUPRAVENTRICULAR EXTRASYSTOLES [None]
